FAERS Safety Report 9641361 (Version 1)
Quarter: 2013Q4

REPORT INFORMATION
  Report Type: Spontaneous
  Country: IN (occurrence: None)
  Receive Date: 20131021
  Receipt Date: 20131021
  Transmission Date: 20140711
  Serious: Yes (Disabling, Other)
  Sender: FDA-Public Use
  Company Number: AUR-APL-2013-08560

PATIENT
  Age: 12 Year
  Sex: Male

DRUGS (1)
  1. SEMISODIUM VALPROATE [Suspect]
     Indication: GRAND MAL CONVULSION

REACTIONS (13)
  - Myositis [None]
  - Hepatotoxicity [None]
  - Lactic acidosis [None]
  - Mitochondrial cytopathy [None]
  - Encephalopathy [None]
  - Mitochondrial myopathy [None]
  - Headache [None]
  - Vomiting [None]
  - Convulsion [None]
  - Lethargy [None]
  - Irritability [None]
  - Cerebral infarction [None]
  - Hepatic function abnormal [None]
